FAERS Safety Report 6279637-3 (Version None)
Quarter: 2009Q3

REPORT INFORMATION
  Report Type: 
  Country: None (occurrence: None)
  Receive Date: 20090723
  Receipt Date: 20090715
  Transmission Date: 20100115
  Serious: Yes (Other)
  Sender: FDA-Public Use
  Company Number: D0062103A

PATIENT
  Sex: Male

DRUGS (1)
  1. SULTANOL [Suspect]
     Route: 055

REACTIONS (1)
  - RESPIRATORY ARREST [None]
